FAERS Safety Report 8484635-5 (Version None)
Quarter: 2012Q3

REPORT INFORMATION
  Report Type: 
  Country: None (occurrence: None)
  Receive Date: 20120703
  Receipt Date: 20120330
  Transmission Date: 20120928
  Serious: Yes (Other)
  Sender: FDA-Public Use
  Company Number: US-TEVA-330944USA

PATIENT
  Sex: Male

DRUGS (1)
  1. NUVIGIL [Suspect]
     Route: 048
     Dates: start: 20111001, end: 20120301

REACTIONS (4)
  - DYSPHAGIA [None]
  - LIP SWELLING [None]
  - ANGIOEDEMA [None]
  - PHARYNGEAL OEDEMA [None]
